FAERS Safety Report 8866958 (Version 1)
Quarter: 2012Q4

REPORT INFORMATION
  Report Type: 
  Country: US (occurrence: US)
  Receive Date: 20121025
  Receipt Date: 20121025
  Transmission Date: 20130627
  Serious: No
  Sender: FDA-Public Use
  Company Number: US-AMGEN-USASP2012013994

PATIENT
  Age: 58 Year
  Sex: Male
  Weight: 126.98 kg

DRUGS (7)
  1. ENBREL [Suspect]
     Dosage: 50 mg, qwk
  2. KLONOPIN [Concomitant]
     Dosage: 0.5 mg, UNK
  3. ATENOLOL [Concomitant]
     Dosage: 100 mg, UNK
  4. CLONAZEPAM [Concomitant]
     Dosage: 0.5 mg, UNK
  5. PAROXETINE [Concomitant]
     Dosage: 10 mg, UNK
  6. CRESTOR [Concomitant]
     Dosage: 10 mg, UNK
  7. LOSARTAN POTASSSIUM [Concomitant]
     Dosage: 100 mg, UNK

REACTIONS (3)
  - Influenza like illness [Recovered/Resolved]
  - Cough [Recovered/Resolved]
  - Respiratory tract congestion [Recovered/Resolved]
